FAERS Safety Report 4833916-2 (Version None)
Quarter: 2005Q4

REPORT INFORMATION
  Report Type: 
  Country: None (occurrence: None)
  Receive Date: 20051118
  Receipt Date: 20051114
  Transmission Date: 20060501
  Serious: Yes (Other)
  Sender: FDA-Public Use
  Company Number: L05-USA-05133-01

PATIENT
  Age: 64 Year
  Sex: Female

DRUGS (1)
  1. CARBAMAZEPINE [Suspect]
     Indication: TRIGEMINAL NEURALGIA

REACTIONS (2)
  - LINEAR IGA DISEASE [None]
  - THERAPY NON-RESPONDER [None]
